FAERS Safety Report 19823856 (Version 1)
Quarter: 2021Q3

REPORT INFORMATION
  Report Type: Spontaneous
  Country: DE (occurrence: DE)
  Receive Date: 20210914
  Receipt Date: 20210914
  Transmission Date: 20211014
  Serious: No
  Sender: FDA-Public Use
  Company Number: DE-ALKEM LABORATORIES LIMITED-DE-ALKEM-2021-04621

PATIENT
  Age: 53 Year
  Sex: Male

DRUGS (3)
  1. PARSABIV [Suspect]
     Active Substance: ETELCALCETIDE HYDROCHLORIDE
     Indication: HYPOPARATHYROIDISM SECONDARY
     Dosage: 10 MILLIGRAM
     Route: 065
  2. PARSABIV [Suspect]
     Active Substance: ETELCALCETIDE HYDROCHLORIDE
     Dosage: 15 MILLIGRAM, ONCE WEEKLY
     Route: 065
     Dates: start: 202009
  3. CINACALCET. [Suspect]
     Active Substance: CINACALCET
     Indication: HYPOPARATHYROIDISM SECONDARY
     Dosage: 60 MILLIGRAM
     Route: 065
     Dates: start: 2014

REACTIONS (1)
  - Blood parathyroid hormone increased [Unknown]

NARRATIVE: CASE EVENT DATE: 202106
